FAERS Safety Report 11181141 (Version 2)
Quarter: 2015Q3

REPORT INFORMATION
  Report Type: Report from Study
  Country: FR (occurrence: FR)
  Receive Date: 20150611
  Receipt Date: 20150914
  Transmission Date: 20151125
  Serious: Yes (Hospitalization)
  Sender: FDA-Public Use
  Company Number: FR-B.I. PHARMACEUTICALS,INC./RIDGEFIELD-2015-BI-30159II

PATIENT
  Age: 58 Year
  Sex: Male

DRUGS (17)
  1. GAVISCON [Concomitant]
     Active Substance: ALUMINUM HYDROXIDE\MAGNESIUM CARBONATE
     Indication: GASTROOESOPHAGEAL REFLUX DISEASE
     Route: 048
     Dates: start: 201112
  2. BETADINE [Concomitant]
     Active Substance: POVIDONE-IODINE
     Indication: PARONYCHIA
     Dosage: ROUTE: CUTANEOUS; DOSE PER APPLICATION: 4% QOD AND 10% 2/DAY
     Route: 050
     Dates: start: 201412
  3. DOXYCYCLINE. [Concomitant]
     Active Substance: DOXYCYCLINE
     Indication: RASH PUSTULAR
     Dosage: 100 MG
     Route: 048
     Dates: start: 20150306
  4. EUCERIN [Concomitant]
     Active Substance: ENSULIZOLE\EUCERIN\OCTINOXATE\OCTISALATE\TITANIUM DIOXIDE\ZINC OXIDE
     Indication: RASH PUSTULAR
     Dosage: ROUTE: CUTANEOUS
     Route: 050
     Dates: start: 20150306
  5. FUCIDINE [Concomitant]
     Active Substance: FUSIDIC ACID
     Indication: PARONYCHIA
     Dosage: ROUTE: CUTANEOUS; DOSE PER APPLICATION: 2%
     Route: 050
     Dates: start: 20150415
  6. DERMOVAL [Concomitant]
     Active Substance: CLOBETASOL
     Dosage: ROUTE: CUTANEOUS; DOSE PER APPLICATION: 10%
     Route: 050
     Dates: start: 201412
  7. GLYCEROL\PARAFFIN [Concomitant]
     Active Substance: GLYCERIN\PARAFFIN
     Indication: RASH PUSTULAR
     Dosage: ROUTE: CUTANEOUS
     Route: 050
     Dates: start: 20150306
  8. KETODERM [Concomitant]
     Active Substance: KETOCONAZOLE
     Indication: PRURITUS
     Dosage: ROUTE: CUTANEOUS; DOSE PER APPLICATION: 2%
     Route: 050
     Dates: start: 20150429
  9. DERMOVAL [Concomitant]
     Active Substance: CLOBETASOL
     Indication: PARONYCHIA
     Dosage: ROUTE: CUTANEOUS; DOSE PER APPLICATION: 0.05%
     Route: 050
     Dates: start: 20150429
  10. BIBW 2992 [Suspect]
     Active Substance: AFATINIB
     Indication: COLORECTAL CANCER METASTATIC
     Dosage: 40 MG
     Route: 048
     Dates: start: 20150415
  11. DELIPROCT [Concomitant]
     Indication: HAEMORRHOIDS
     Dosage: ROUTE: CUTANEOUS
     Route: 050
     Dates: start: 20150429
  12. FUCIDINE [Concomitant]
     Active Substance: FUSIDIC ACID
     Dosage: ROUTE: CUTANEOUS; DOSE PER APPLICATION: 10%
     Route: 050
     Dates: start: 201412
  13. CETUXIMAB [Suspect]
     Active Substance: CETUXIMAB
     Indication: COLORECTAL CANCER METASTATIC
     Dosage: 1005 MG
     Route: 042
     Dates: start: 20150415
  14. BICALAN [Concomitant]
     Indication: MUCOSAL INFLAMMATION
     Dosage: ROUTE: MOUTHWASH; DOSE PER APPLICATION: 1.4%
     Route: 050
     Dates: start: 20150407
  15. DACUDOSES [Concomitant]
     Indication: CONJUNCTIVITIS ALLERGIC
     Route: 065
     Dates: start: 20150429
  16. DOLIPRANE [Concomitant]
     Active Substance: ACETAMINOPHEN
     Indication: BACK PAIN
     Dosage: ROUTE: CUTANEOUS; DOSE PER APPLICATION: 2%
     Route: 048
     Dates: start: 20150512
  17. BETADINE [Concomitant]
     Active Substance: POVIDONE-IODINE
     Dosage: ROUTE: CUTANEOUS; DOSE PER APPLICATION: 10%
     Route: 050
     Dates: start: 201412

REACTIONS (3)
  - Pyrexia [Recovered/Resolved]
  - Diarrhoea [Recovered/Resolved]
  - Abdominal pain [Recovered/Resolved]

NARRATIVE: CASE EVENT DATE: 20150522
